FAERS Safety Report 17252238 (Version 1)
Quarter: 2020Q1

REPORT INFORMATION
  Report Type: Other
  Country: GB (occurrence: GB)
  Receive Date: 20200109
  Receipt Date: 20200109
  Transmission Date: 20200409
  Serious: Yes (Life-Threatening, Hospitalization)
  Sender: FDA-Public Use
  Company Number: GB-GLENMARK PHARMACEUTICALS-2019GMK045205

PATIENT

DRUGS (6)
  1. LAMOTRIGINE. [Suspect]
     Active Substance: LAMOTRIGINE
     Dosage: 100 MG, OD
     Route: 048
     Dates: start: 20191210, end: 20191211
  2. BENDROFLUMETHIAZIDE [Concomitant]
     Active Substance: BENDROFLUMETHIAZIDE
     Indication: PRODUCT USED FOR UNKNOWN INDICATION
     Dosage: 2.5 MG, OD (EVERY MORNING)
     Route: 048
  3. LISINOPRIL. [Concomitant]
     Active Substance: LISINOPRIL
     Indication: PRODUCT USED FOR UNKNOWN INDICATION
     Dosage: 20 MG, OD
     Route: 048
  4. LEVETIRACETAM. [Concomitant]
     Active Substance: LEVETIRACETAM
     Indication: PARTIAL SEIZURES
     Dosage: 500 MG, OD
     Route: 048
  5. LAMOTRIGINE. [Suspect]
     Active Substance: LAMOTRIGINE
     Indication: PRODUCT USED FOR UNKNOWN INDICATION
     Dosage: 50 MG, OD (TO INCREASE IN TWO WEEKLY INTERVALS BY 25MG UP TO TARGET OF 75MG TWICE DAILY)
     Route: 048
     Dates: start: 20191125, end: 20191209
  6. OMEPRAZOLE. [Concomitant]
     Active Substance: OMEPRAZOLE
     Indication: PRODUCT USED FOR UNKNOWN INDICATION
     Dosage: 20 MG, OD
     Route: 048

REACTIONS (17)
  - Conjunctivitis [Unknown]
  - Mouth swelling [Unknown]
  - Mouth ulceration [Unknown]
  - Rash [Unknown]
  - Vision blurred [Unknown]
  - Swollen tongue [Not Recovered/Not Resolved]
  - Dyspnoea [Unknown]
  - Erythema [Unknown]
  - Eyelid margin crusting [Unknown]
  - Pruritus [Unknown]
  - Stevens-Johnson syndrome [Not Recovered/Not Resolved]
  - Oral pain [Unknown]
  - Lip swelling [Unknown]
  - Oral disorder [Unknown]
  - Blindness [Unknown]
  - Glossodynia [Unknown]
  - Lip ulceration [Unknown]

NARRATIVE: CASE EVENT DATE: 20191125
